FAERS Safety Report 7626527-7 (Version None)
Quarter: 2011Q3

REPORT INFORMATION
  Report Type: 
  Country: None (occurrence: None)
  Receive Date: 20110721
  Receipt Date: 20110630
  Transmission Date: 20111222
  Serious: Yes (Hospitalization)
  Sender: FDA-Public Use
  Company Number: US-GLAXOSMITHKLINE-A0755438A

PATIENT
  Age: 51 Year
  Sex: Female
  Weight: 128.2 kg

DRUGS (4)
  1. AVANDIA [Suspect]
     Indication: TYPE 2 DIABETES MELLITUS
     Dosage: 4MG TWICE PER DAY
     Route: 048
     Dates: start: 20060601, end: 20070601
  2. FUROSEMIDE [Concomitant]
     Dates: start: 20050101
  3. LABETALOL HCL [Concomitant]
  4. LIPITOR [Concomitant]
     Dates: start: 20060101

REACTIONS (9)
  - CARDIAC FAILURE CONGESTIVE [None]
  - ABASIA [None]
  - SWELLING [None]
  - RENAL IMPAIRMENT [None]
  - FALL [None]
  - PAIN [None]
  - AMENORRHOEA [None]
  - JOINT RANGE OF MOTION DECREASED [None]
  - ACTIVITIES OF DAILY LIVING IMPAIRED [None]
